FAERS Safety Report 8480687-7 (Version None)
Quarter: 2012Q3

REPORT INFORMATION
  Report Type: 
  Country: None (occurrence: None)
  Receive Date: 20120702
  Receipt Date: 20120626
  Transmission Date: 20120928
  Serious: No
  Sender: FDA-Public Use
  Company Number: US-PFIZER INC-2012153827

PATIENT
  Sex: Female
  Weight: 64.853 kg

DRUGS (1)
  1. ARTHROTEC [Suspect]
     Indication: OSTEOARTHRITIS
     Dosage: 75 MG / 200 MCG, UNK
     Route: 048

REACTIONS (1)
  - RASH ERYTHEMATOUS [None]
